FAERS Safety Report 6275123-5 (Version None)
Quarter: 2009Q3

REPORT INFORMATION
  Report Type: 
  Country: None (occurrence: None)
  Receive Date: 20090721
  Receipt Date: 20090715
  Transmission Date: 20100115
  Serious: Yes (Life-Threatening, Hospitalization)
  Sender: FDA-Public Use
  Company Number: PHBS2003JP10146

PATIENT
  Sex: Male
  Weight: 61 kg

DRUGS (9)
  1. NEORAL [Suspect]
     Indication: DERMATITIS ATOPIC
     Dosage: 250 MG/D
     Route: 048
     Dates: start: 20020221, end: 20020406
  2. NEORAL [Suspect]
     Dosage: 100 MG/D
     Route: 048
     Dates: start: 20020502, end: 20021120
  3. NEORAL [Suspect]
     Dosage: 75 MG/D
     Route: 048
     Dates: start: 20021121, end: 20030309
  4. NEORAL [Suspect]
     Dosage: 50 MG/D
     Route: 048
     Dates: start: 20030310, end: 20030411
  5. CELESTAMINE TAB [Concomitant]
     Indication: DERMATITIS ATOPIC
     Dosage: 6 DF/D
     Route: 048
     Dates: start: 19880101, end: 20010601
  6. GLYMESASON [Concomitant]
     Indication: DERMATITIS ATOPIC
     Dosage: UNK
     Route: 061
     Dates: start: 20011101
  7. NERISONA [Concomitant]
     Indication: DERMATITIS ATOPIC
     Route: 061
     Dates: start: 20011101, end: 20020701
  8. CORTRIL [Concomitant]
     Indication: DERMATITIS ATOPIC
     Dosage: 20 MG/D
     Route: 048
     Dates: start: 20020201, end: 20030401
  9. PROTOPIC [Concomitant]
     Indication: DERMATITIS ATOPIC
     Dosage: UNK
     Route: 061
     Dates: start: 20020301

REACTIONS (2)
  - ANAPLASTIC LARGE CELL LYMPHOMA T- AND NULL-CELL TYPES STAGE I [None]
  - LYMPHADENOPATHY [None]
